FAERS Safety Report 6519498-8 (Version None)
Quarter: 2009Q4

REPORT INFORMATION
  Report Type: 
  Country: None (occurrence: None)
  Receive Date: 20091228
  Receipt Date: 20091215
  Transmission Date: 20100525
  Serious: Yes (Death, Life-Threatening, Other)
  Sender: FDA-Public Use
  Company Number: US-BAYER-200925974NA

PATIENT
  Age: 72 Year
  Sex: Male
  Weight: 63 kg

DRUGS (25)
  1. TRASYLOL [Suspect]
     Indication: CORONARY ARTERY BYPASS
     Dosage: TEST DOSE
     Route: 042
     Dates: start: 20090626, end: 20090626
  2. TRASYLOL [Suspect]
     Dosage: LOADING DOSE
     Route: 042
     Dates: start: 20090626, end: 20090626
  3. TRASYLOL [Suspect]
     Dosage: 50 ML/HR DURING SURGERY
     Route: 042
     Dates: start: 20090626, end: 20090626
  4. COENZYME Q10 [Concomitant]
     Route: 048
  5. CRESTOR [Concomitant]
     Route: 048
  6. ASPIRIN [Concomitant]
     Route: 048
  7. FINASTERIDE [Concomitant]
     Route: 048
  8. FISH OIL [Concomitant]
     Route: 048
  9. FOLATE SODIUM [Concomitant]
     Route: 048
  10. AMARYL [Concomitant]
     Route: 048
  11. ISOSORBIDE [Concomitant]
     Route: 048
  12. LASIX [Concomitant]
     Route: 048
  13. LISINOPRIL [Concomitant]
  14. METFORMIN HCL [Concomitant]
     Route: 048
  15. METOPROLOL TARTRATE [Concomitant]
     Route: 048
  16. MULTI-VITAMIN [Concomitant]
  17. NITRO-BID [Concomitant]
     Route: 060
  18. NORVASC [Concomitant]
     Route: 048
  19. PLAVIX [Concomitant]
     Route: 048
  20. TERAZOSIN HCL [Concomitant]
     Route: 048
  21. TRICOR [Concomitant]
     Route: 048
  22. CYMBALTA [Concomitant]
     Route: 048
  23. PNEUMOVAX 23 [Concomitant]
     Route: 030
     Dates: start: 20090524
  24. AMIODARONE [Concomitant]
  25. HESPAN [Concomitant]
     Indication: URINE OUTPUT DECREASED
     Route: 040
     Dates: start: 20090627, end: 20090627

REACTIONS (6)
  - DEATH [None]
  - ELECTROMECHANICAL DISSOCIATION [None]
  - HAEMODYNAMIC INSTABILITY [None]
  - HYPERKALAEMIA [None]
  - RENAL FAILURE [None]
  - VENTRICULAR FIBRILLATION [None]
